FAERS Safety Report 25458666 (Version 2)
Quarter: 2025Q3

REPORT INFORMATION
  Report Type: Spontaneous
  Country: US (occurrence: US)
  Receive Date: 20250620
  Receipt Date: 20250715
  Transmission Date: 20251020
  Serious: No
  Sender: ROCHE
  Company Number: US-ROCHE-10000313554

PATIENT

DRUGS (3)
  1. RITUXAN [Suspect]
     Active Substance: RITUXIMAB
     Indication: Product used for unknown indication
     Route: 042
  2. HERCEPTIN [Suspect]
     Active Substance: TRASTUZUMAB
     Indication: Product used for unknown indication
     Route: 065
  3. PERJETA [Suspect]
     Active Substance: PERTUZUMAB
     Indication: Product used for unknown indication
     Route: 065

REACTIONS (2)
  - Product storage error [Unknown]
  - No adverse event [Unknown]
